FAERS Safety Report 5374079-7 (Version None)
Quarter: 2007Q2

REPORT INFORMATION
  Report Type: 
  Country: None (occurrence: None)
  Receive Date: 20070628
  Receipt Date: 20070618
  Transmission Date: 20071010
  Serious: Yes (Other)
  Sender: FDA-Public Use
  Company Number: US-ALLERGAN-0706427US

PATIENT
  Sex: Female

DRUGS (3)
  1. BOTOX COSMETIC [Suspect]
     Indication: SKIN WRINKLING
     Dosage: 40 UNITS, SINGLE
     Route: 030
     Dates: start: 20060509, end: 20060509
  2. BOTOX COSMETIC [Suspect]
     Dosage: UNK, SINGLE
     Dates: start: 20051027, end: 20051027
  3. BOTOX COSMETIC [Suspect]
     Dosage: DOSE RECEIVED SEVERAL YEARS AGO

REACTIONS (1)
  - EYELID PTOSIS [None]
